FAERS Safety Report 16877221 (Version 1)
Quarter: 2019Q4

REPORT INFORMATION
  Report Type: Spontaneous
  Country: US (occurrence: US)
  Receive Date: 20191002
  Receipt Date: 20191002
  Transmission Date: 20200122
  Serious: Yes (Hospitalization)
  Sender: FDA-Public Use
  Company Number: None

PATIENT
  Age: 74 Year
  Sex: Male
  Weight: 84.15 kg

DRUGS (6)
  1. EPHEDRINE 5MG [Concomitant]
     Dates: start: 20180820, end: 20180820
  2. LIDOCAINE. [Suspect]
     Active Substance: LIDOCAINE
     Route: 041
     Dates: start: 20180820, end: 20180821
  3. ATROPINE 0.2MG [Concomitant]
     Dates: start: 20180820, end: 20180820
  4. LABETOLOL 5MG [Concomitant]
     Dates: start: 20180820, end: 20180820
  5. HYDRALAZINE 5MG [Concomitant]
     Dates: start: 20180820, end: 20180820
  6. NALOXONE 0.1MG [Concomitant]
     Dates: start: 20180820, end: 20180820

REACTIONS (2)
  - Pain [None]
  - Diplopia [None]

NARRATIVE: CASE EVENT DATE: 20180820
